FAERS Safety Report 6067136-3 (Version None)
Quarter: 2009Q1

REPORT INFORMATION
  Report Type: 
  Country: None (occurrence: None)
  Receive Date: 20090203
  Receipt Date: 20090120
  Transmission Date: 20090719
  Serious: Yes (Hospitalization)
  Sender: FDA-Public Use
  Company Number: SPV1-2009-00045

PATIENT
  Age: 86 Year
  Sex: Male
  Weight: 78.9 kg

DRUGS (12)
  1. LIALDA [Suspect]
     Indication: COLITIS
     Dosage: SEE IMAGE
     Route: 048
     Dates: start: 20081001, end: 20081001
  2. LIALDA [Suspect]
     Indication: COLITIS
     Dosage: SEE IMAGE
     Route: 048
     Dates: start: 20081009, end: 20081001
  3. LIALDA [Suspect]
     Indication: COLITIS
     Dosage: SEE IMAGE
     Route: 048
     Dates: start: 20081001
  4. IMODIUM /00384302/ (LOPERAMIDE HYDROCHLORIDE) [Concomitant]
  5. OMEPRAZOLE [Concomitant]
  6. POTASSIUM (POTASSIUM) [Concomitant]
  7. TENORMIN [Concomitant]
  8. SIMVASTATIN [Concomitant]
  9. LASIX [Concomitant]
  10. GLYBURIDE [Concomitant]
  11. ENALAPRIL MALEATE [Concomitant]
  12. ANTIGLAUCOMA PRPARATIONS AND MIOTICS ALTERNATIVE FORM [Concomitant]

REACTIONS (4)
  - ATRIAL FIBRILLATION [None]
  - CONSTIPATION [None]
  - FAECES HARD [None]
  - FALL [None]
